FAERS Safety Report 14015155 (Version 1)
Quarter: 2017Q3

REPORT INFORMATION
  Report Type: Spontaneous
  Country: FR (occurrence: FR)
  Receive Date: 20170927
  Receipt Date: 20170927
  Transmission Date: 20171128
  Serious: Yes (Other)
  Sender: FDA-Public Use
  Company Number: FR-LPDUSPRD-20171329

PATIENT
  Age: 25 Year
  Sex: Female

DRUGS (1)
  1. FERINJECT [Suspect]
     Active Substance: FERRIC CARBOXYMALTOSE
     Dosage: 1 GM
     Route: 041
     Dates: start: 20170705, end: 20170705

REACTIONS (6)
  - Feeling hot [Unknown]
  - Vomiting [Unknown]
  - Exposure during pregnancy [Unknown]
  - Chest pain [Unknown]
  - Uterine contractions during pregnancy [Unknown]
  - Vertigo [Unknown]

NARRATIVE: CASE EVENT DATE: 20170705
